FAERS Safety Report 13791986 (Version 1)
Quarter: 2017Q3

REPORT INFORMATION
  Report Type: Spontaneous
  Country: US (occurrence: US)
  Receive Date: 20170725
  Receipt Date: 20170725
  Transmission Date: 20171127
  Serious: No
  Sender: FDA-Public Use
  Company Number: US-ROCHE-1209158

PATIENT

DRUGS (16)
  1. EVISTA [Concomitant]
     Active Substance: RALOXIFENE HYDROCHLORIDE
     Route: 048
  2. FOLIC ACID/VITAMIN B COMPLEX [Concomitant]
     Route: 048
  3. CANASA [Concomitant]
     Active Substance: MESALAMINE
     Dosage: 1-2 SUPPOSITORY
     Route: 065
  4. IPRATROPIUM BROMIDE. [Concomitant]
     Active Substance: IPRATROPIUM BROMIDE
     Dosage: 1 VIAL EVERY 4-6 HOURS
     Route: 065
  5. CEVIMELINE. [Concomitant]
     Active Substance: CEVIMELINE
     Route: 048
  6. EFFEXOR XR [Concomitant]
     Active Substance: VENLAFAXINE HYDROCHLORIDE
     Route: 048
  7. ATROVENT HFA [Concomitant]
     Active Substance: IPRATROPIUM BROMIDE
     Dosage: 2 PUFF EVERY 4 HOURLY AS REQUIRED
     Route: 065
  8. LUMIGAN [Concomitant]
     Active Substance: BIMATOPROST
     Dosage: BOTH EYE AT BED TIME
     Route: 047
  9. ALBUTEROL SULFATE. [Concomitant]
     Active Substance: ALBUTEROL SULFATE
     Dosage: 1/2 FREQUENCY EVERY 4 HOURLY AS REQUIRED
     Route: 050
  10. CALCIUM CARBONATE/CHOLECALCIFEROL [Concomitant]
     Active Substance: CALCIUM CARBONATE\CHOLECALCIFEROL
     Route: 048
  11. HYDROCORTISONE. [Concomitant]
     Active Substance: HYDROCORTISONE
     Route: 065
  12. ASPRIN-EC [Concomitant]
     Route: 048
  13. ISOSORBIDE MONONITRATE. [Concomitant]
     Active Substance: ISOSORBIDE MONONITRATE
     Route: 048
  14. TORADOL [Suspect]
     Active Substance: KETOROLAC TROMETHAMINE
     Indication: PRODUCT USED FOR UNKNOWN INDICATION
     Route: 065
  15. ZOLPIDEM [Concomitant]
     Active Substance: ZOLPIDEM\ZOLPIDEM TARTRATE
     Dosage: 1/2 AT BEDTIME
     Route: 048
  16. GAVISCON EXTRA STRENGTH [Concomitant]
     Active Substance: ALUMINUM HYDROXIDE\MAGNESIUM CARBONATE
     Dosage: CHEWABLE, AS NEEDED
     Route: 048

REACTIONS (1)
  - Influenza [Unknown]
